FAERS Safety Report 6715545-9 (Version None)
Quarter: 2010Q2

REPORT INFORMATION
  Report Type: 
  Country: None (occurrence: None)
  Receive Date: 20100506
  Receipt Date: 20100506
  Transmission Date: 20101027
  Serious: Yes (Hospitalization)
  Sender: FDA-Public Use
  Company Number: None

PATIENT
  Age: 53 Year
  Sex: Female
  Weight: 99 kg

DRUGS (9)
  1. SULFAMETHOXAZOLE AND TRIMETHOPRIM [Suspect]
     Indication: SINUSITIS
     Dosage: 800/160 MG Q 12 PO
     Route: 048
     Dates: start: 20100126, end: 20100127
  2. ZOLPIDEM [Concomitant]
  3. AMOXICILLIN AND CLAVULANATE POTASSIUM [Concomitant]
  4. CYCLOBENZAPRINE HCL [Concomitant]
  5. LISINOPRIL AND HYDROCHLOROTHIAZIDE [Concomitant]
  6. NAPROXEN [Concomitant]
  7. SERTRALINE HCL [Concomitant]
  8. ALBUTEROL [Concomitant]
  9. FLUTICASONE PROPIONATE [Concomitant]

REACTIONS (3)
  - BODY TEMPERATURE INCREASED [None]
  - CHILLS [None]
  - TOXIC EPIDERMAL NECROLYSIS [None]
